FAERS Safety Report 9208802 (Version 1)
Quarter: 2013Q1

REPORT INFORMATION
  Report Type: Spontaneous
  Country: JP (occurrence: None)
  Receive Date: 20130205
  Receipt Date: 20130205
  Transmission Date: 20140127
  Serious: Yes (Other)
  Sender: FDA-Public Use
  Company Number: 2013-000292

PATIENT
  Age: 82 Year
  Sex: Female

DRUGS (1)
  1. ACTONEL [Suspect]
     Indication: OSTEOPOROSIS
     Route: 048
     Dates: start: 200710

REACTIONS (7)
  - Oesophageal stenosis [None]
  - Inflammation [None]
  - Gastrointestinal tract irritation [None]
  - Oropharyngeal discomfort [None]
  - Oesophageal ulcer [None]
  - Dysphagia [None]
  - Foreign body [None]
